FAERS Safety Report 8342077-7 (Version None)
Quarter: 2012Q2

REPORT INFORMATION
  Report Type: 
  Country: None (occurrence: None)
  Receive Date: 20120507
  Receipt Date: 20120427
  Transmission Date: 20120825
  Serious: Yes (Hospitalization, Disabling)
  Sender: FDA-Public Use
  Company Number: CH-ROCHE-1043910

PATIENT
  Sex: Male

DRUGS (4)
  1. PREDNISOLONE [Concomitant]
  2. AVASTIN [Suspect]
     Indication: PRODUCT USED FOR UNKNOWN INDICATION
     Route: 031
     Dates: start: 20120217, end: 20120217
  3. SCOPOLAMINE [Concomitant]
  4. PRED FORTE [Concomitant]

REACTIONS (3)
  - ENDOPHTHALMITIS [None]
  - EYE INFECTION [None]
  - EYE INFLAMMATION [None]
